FAERS Safety Report 9557607 (Version 2)
Quarter: 2013Q4

REPORT INFORMATION
  Report Type: Spontaneous
  Country: US (occurrence: US)
  Receive Date: 20130926
  Receipt Date: 20131217
  Transmission Date: 20140711
  Serious: Yes (Death)
  Sender: FDA-Public Use
  Company Number: US-GLAXOSMITHKLINE-A1042964A

PATIENT
  Age: 78 Year
  Sex: Male

DRUGS (1)
  1. SORIATANE [Suspect]
     Indication: SQUAMOUS CELL CARCINOMA
     Route: 048
     Dates: start: 20110819

REACTIONS (1)
  - Dementia Alzheimer^s type [Fatal]
